FAERS Safety Report 5019880-4 (Version None)
Quarter: 2006Q2

REPORT INFORMATION
  Report Type: 
  Country: None (occurrence: None)
  Receive Date: 20060607
  Receipt Date: 20060518
  Transmission Date: 20061013
  Serious: Yes (Other)
  Sender: FDA-Public Use
  Company Number: US-AMGEN-US178327

PATIENT
  Sex: Female
  Weight: 62.7 kg

DRUGS (6)
  1. ARANESP [Suspect]
     Indication: ANAEMIA OF MALIGNANT DISEASE
     Dates: start: 20060330, end: 20060412
  2. PROCRIT [Suspect]
     Dates: start: 20021201, end: 20030601
  3. IFOSFAMIDE [Concomitant]
  4. ATIVAN [Concomitant]
  5. CARBOPLATIN [Concomitant]
     Dates: start: 20060301, end: 20060401
  6. TAXOL [Concomitant]
     Dates: start: 20060301

REACTIONS (2)
  - APLASIA PURE RED CELL [None]
  - THERAPEUTIC RESPONSE DECREASED [None]
